FAERS Safety Report 15703030 (Version 1)
Quarter: 2018Q4

REPORT INFORMATION
  Report Type: Report from Study
  Country: None (occurrence: IL)
  Receive Date: 20181210
  Receipt Date: 20181210
  Transmission Date: 20190205
  Serious: Yes (Hospitalization)
  Sender: FDA-Public Use
  Company Number: IL-ABBVIE-18S-082-2582422-00

PATIENT
  Sex: Male

DRUGS (2)
  1. DUODOPA [Suspect]
     Active Substance: CARBIDOPA\LEVODOPA
     Dosage: MD- 3 ML, CD- 1.7 ML/HOUR, ED- 0.5 ML
     Route: 050
  2. DUODOPA [Suspect]
     Active Substance: CARBIDOPA\LEVODOPA
     Indication: PARKINSON^S DISEASE
     Route: 050
     Dates: start: 20150214

REACTIONS (3)
  - Aspiration [Not Recovered/Not Resolved]
  - Faecalith [Not Recovered/Not Resolved]
  - Faecaloma [Not Recovered/Not Resolved]
